FAERS Safety Report 6903029-4 (Version None)
Quarter: 2010Q3

REPORT INFORMATION
  Report Type: 
  Country: None (occurrence: None)
  Receive Date: 20100803
  Receipt Date: 20080820
  Transmission Date: 20110219
  Serious: Yes (Other)
  Sender: FDA-Public Use
  Company Number: US-PFIZER INC-2008069831

PATIENT
  Age: 43 Year
  Sex: Female

DRUGS (6)
  1. LYRICA [Suspect]
     Indication: AFFECTIVE DISORDER
     Dates: start: 20080502
  2. LYRICA [Suspect]
     Indication: FIBROMYALGIA
  3. LAMICTAL [Concomitant]
  4. CYMBALTA [Concomitant]
  5. AMPHETAMINE SULFATE [Concomitant]
  6. HYDROCHLOROTHIAZIDE [Concomitant]
     Indication: HYPERTENSION

REACTIONS (3)
  - FACE OEDEMA [None]
  - OEDEMA PERIPHERAL [None]
  - WEIGHT INCREASED [None]
